FAERS Safety Report 12120954 (Version 1)
Quarter: 2016Q1

REPORT INFORMATION
  Report Type: Spontaneous
  Country: DE (occurrence: DE)
  Receive Date: 20160226
  Receipt Date: 20160226
  Transmission Date: 20160526
  Serious: Yes (Hospitalization)
  Sender: FDA-Public Use
  Company Number: DE-TEVA-636313GER

PATIENT
  Sex: Male
  Weight: 85.9 kg

DRUGS (9)
  1. BENAZEPRIL 20 MG [Concomitant]
     Dosage: 20 MILLIGRAM DAILY; 20-0-0
     Route: 048
  2. PIPAMPERON [Concomitant]
     Active Substance: PIPAMPERONE HYDROCHLORIDE
     Route: 048
  3. METOPROLOL. [Suspect]
     Active Substance: METOPROLOL
     Dosage: 150 MILLIGRAM DAILY; 100-0-50
     Route: 048
     Dates: start: 2012
  4. BENAZEPRIL 20 MG [Concomitant]
     Dosage: 20 MILLIGRAM DAILY; 20-0-0
     Route: 048
  5. ALLOPURINOL 300 MG [Concomitant]
     Active Substance: ALLOPURINOL
     Dosage: 300 MILLIGRAM DAILY; 0-0-300
     Route: 048
  6. ARIPIPRAZOL [Concomitant]
     Active Substance: ARIPIPRAZOLE
     Dosage: 10 MILLIGRAM DAILY; 10-0-0
     Route: 048
     Dates: start: 2012
  7. PROTHIPENDYL [Concomitant]
     Active Substance: PROTHIPENDYL
     Dosage: 40 MILLIGRAM DAILY; 0-0-0-40 MG
     Route: 048
     Dates: start: 2012
  8. MOLSIDOMIN RET 8 MG [Concomitant]
     Dosage: 8 MILLIGRAM DAILY; 8 MG-0-0
     Route: 048
  9. TORASEMID 5 MG [Concomitant]
     Dosage: 5 MILLIGRAM DAILY; 5 MG-0-0
     Route: 048

REACTIONS (4)
  - Hallucination [Not Recovered/Not Resolved]
  - Delusion [Not Recovered/Not Resolved]
  - Panic attack [Not Recovered/Not Resolved]
  - Depression [Not Recovered/Not Resolved]

NARRATIVE: CASE EVENT DATE: 2012
